FAERS Safety Report 14624964 (Version 1)
Quarter: 2018Q1

REPORT INFORMATION
  Report Type: Spontaneous
  Country: US (occurrence: US)
  Receive Date: 20180312
  Receipt Date: 20180312
  Transmission Date: 20180509
  Serious: No
  Sender: FDA-Public Use
  Company Number: US-BAYER-2018-043967

PATIENT
  Age: 84 Year
  Sex: Male
  Weight: 49.98 kg

DRUGS (3)
  1. BAYER ASPIRIN [Suspect]
     Active Substance: ASPIRIN
     Dosage: 1 DF, QD
     Route: 048
  2. MIRALAX [Suspect]
     Active Substance: POLYETHYLENE GLYCOL 3350
     Indication: GASTROINTESTINAL DISORDER
     Dosage: 1 DF, QD
     Route: 048
     Dates: start: 201802, end: 201802
  3. MILK OF MAGNESIA CHERRY [Suspect]
     Active Substance: MAGNESIUM HYDROXIDE
     Dosage: UNK
     Route: 047
     Dates: start: 201711, end: 201711

REACTIONS (5)
  - Product prescribing issue [Unknown]
  - Constipation [Unknown]
  - Product use issue [Unknown]
  - Drug ineffective [None]
  - Faeces hard [Unknown]

NARRATIVE: CASE EVENT DATE: 201711
